FAERS Safety Report 15953490 (Version 4)
Quarter: 2019Q3

REPORT INFORMATION
  Report Type: Report from Study
  Country: FR (occurrence: FR)
  Receive Date: 20190212
  Receipt Date: 20190724
  Transmission Date: 20191004
  Serious: Yes (Hospitalization)
  Sender: FDA-Public Use
  Company Number: FR-BIOMARINAP-FR-2019-121880

PATIENT
  Age: 11 Year
  Sex: Male
  Weight: 40 kg

DRUGS (5)
  1. UVEDOSE [Concomitant]
     Active Substance: CHOLECALCIFEROL
     Indication: PRODUCT USED FOR UNKNOWN INDICATION
     Dosage: UNK
     Dates: start: 20190111, end: 20190212
  2. ALVITYL                            /02362701/ [Concomitant]
     Indication: SELENIUM DEFICIENCY
     Dosage: UNK UNK, QD
     Dates: start: 20190111, end: 20190211
  3. ALVITYL                            /02362701/ [Concomitant]
     Indication: FATIGUE
  4. KUVAN [Suspect]
     Active Substance: SAPROPTERIN DIHYDROCHLORIDE
     Indication: PHENYLKETONURIA
     Dosage: 700 MILLIGRAM, QD
     Route: 048
     Dates: start: 20171207, end: 20190206
  5. KUVAN [Suspect]
     Active Substance: SAPROPTERIN DIHYDROCHLORIDE
     Dosage: 400 MILLIGRAM, QD
     Route: 048
     Dates: start: 20130220, end: 20141127

REACTIONS (1)
  - Fatigue [Recovered/Resolved with Sequelae]

NARRATIVE: CASE EVENT DATE: 20190204
